FAERS Safety Report 9991705 (Version 3)
Quarter: 2014Q2

REPORT INFORMATION
  Report Type: Spontaneous
  Country: US (occurrence: US)
  Receive Date: 20140310
  Receipt Date: 20140403
  Transmission Date: 20141212
  Serious: Yes (Hospitalization, Other)
  Sender: FDA-Public Use
  Company Number: US-B.I. PHARMACEUTICALS,INC./RIDGEFIELD-2014-BI-09468BP

PATIENT
  Age: 81 Year
  Sex: Male
  Weight: 72 kg

DRUGS (3)
  1. SPIRIVA [Suspect]
     Indication: CHRONIC OBSTRUCTIVE PULMONARY DISEASE
     Dosage: 36 MCG
     Route: 055
     Dates: start: 201312, end: 201401
  2. SPIRIVA [Suspect]
     Dosage: 18 MCG
     Route: 055
     Dates: start: 201401
  3. SPIRIVA [Suspect]
     Dosage: 18 MCG
     Route: 055
     Dates: start: 2004, end: 201312

REACTIONS (12)
  - Pneumonia [Not Recovered/Not Resolved]
  - Hypertension [Recovered/Resolved]
  - Cardiac arrest [Recovered/Resolved]
  - Coronary artery occlusion [Unknown]
  - Cardiac failure congestive [Not Recovered/Not Resolved]
  - Atrial fibrillation [Not Recovered/Not Resolved]
  - Ventricular dysfunction [Unknown]
  - Dyspnoea exertional [Not Recovered/Not Resolved]
  - Prescribed overdose [Recovered/Resolved]
  - Drug ineffective [Not Recovered/Not Resolved]
  - Product quality issue [Not Recovered/Not Resolved]
  - Product quality issue [Not Recovered/Not Resolved]
